FAERS Safety Report 18350377 (Version 1)
Quarter: 2020Q4

REPORT INFORMATION
  Report Type: Report from Study
  Country: IN (occurrence: IN)
  Receive Date: 20201006
  Receipt Date: 20201006
  Transmission Date: 20210114
  Serious: Yes (Death, Hospitalization)
  Sender: FDA-Public Use
  Company Number: PHHY2019IN060254

PATIENT
  Age: 73 Year
  Sex: Male

DRUGS (1)
  1. VYMADA [Suspect]
     Active Substance: SACUBITRIL\VALSARTAN
     Indication: CARDIAC FAILURE
     Dosage: 50 MG, BID
     Route: 048
     Dates: start: 20190222

REACTIONS (5)
  - Heart rate decreased [Unknown]
  - Death [Fatal]
  - Wrong technique in product usage process [Unknown]
  - Fluid retention [Unknown]
  - Underdose [Unknown]

NARRATIVE: CASE EVENT DATE: 20190222
